FAERS Safety Report 8503996-1 (Version None)
Quarter: 2012Q3

REPORT INFORMATION
  Report Type: 
  Country: None (occurrence: None)
  Receive Date: 20120702
  Receipt Date: 20120621
  Transmission Date: 20120928
  Serious: Yes (Other)
  Sender: FDA-Public Use
  Company Number: 2012MA007727

PATIENT
  Age: 68 Year
  Sex: Male

DRUGS (3)
  1. IBUPROFEN [Suspect]
     Indication: DENTAL OPERATION
     Dosage: 1X; PO
     Route: 048
     Dates: start: 20120321, end: 20120321
  2. NIMESULIDE (NOMESULIDE) [Suspect]
     Indication: DENTAL OPERATION
     Dosage: 1X; PO
     Route: 048
     Dates: start: 20120321, end: 20120321
  3. AMOXICILLIN [Suspect]
     Indication: DENTAL OPERATION
     Dosage: 1X; PO
     Route: 048
     Dates: start: 20120321, end: 20120321

REACTIONS (6)
  - ERYTHEMA [None]
  - URTICARIA [None]
  - THROAT TIGHTNESS [None]
  - LIP OEDEMA [None]
  - DYSPHONIA PSYCHOGENIC [None]
  - PRURITUS [None]
